FAERS Safety Report 16817241 (Version 1)
Quarter: 2019Q3

REPORT INFORMATION
  Report Type: Spontaneous
  Country: GB (occurrence: GB)
  Receive Date: 20190917
  Receipt Date: 20190917
  Transmission Date: 20191005
  Serious: Yes (Hospitalization)
  Sender: FDA-Public Use
  Company Number: GB-MYLANLABS-2019M1086154

PATIENT
  Age: 91 Year
  Sex: Female

DRUGS (4)
  1. WARFARIN [Concomitant]
     Active Substance: WARFARIN
     Dosage: WITHHELD
  2. CANDESARTAN. [Suspect]
     Active Substance: CANDESARTAN
     Indication: ESSENTIAL HYPERTENSION
     Dosage: (MORNING)
     Route: 048
     Dates: start: 20180601, end: 20190329
  3. BISOPROLOL [Concomitant]
     Active Substance: BISOPROLOL
     Dosage: UNK
  4. PARACETAMOL [Concomitant]
     Active Substance: ACETAMINOPHEN
     Dosage: UNK

REACTIONS (10)
  - Confusional state [Unknown]
  - Feeling cold [Unknown]
  - General physical health deterioration [Unknown]
  - Hypophagia [Unknown]
  - Acute kidney injury [Recovering/Resolving]
  - Body temperature decreased [Unknown]
  - Blood pressure decreased [Unknown]
  - Asthenia [Unknown]
  - C-reactive protein increased [Unknown]
  - Fluid intake reduced [Unknown]

NARRATIVE: CASE EVENT DATE: 20190328
